FAERS Safety Report 19125841 (Version 1)
Quarter: 2021Q2

REPORT INFORMATION
  Report Type: Spontaneous
  Country: US (occurrence: US)
  Receive Date: 20210412
  Receipt Date: 20210412
  Transmission Date: 20210717
  Serious: No
  Sender: FDA-Public Use
  Company Number: US-INTRA-CELLULAR THERAPIES, INC.-2021ICT00142

PATIENT
  Sex: Female

DRUGS (4)
  1. CAPLYTA [Suspect]
     Active Substance: LUMATEPERONE
     Dosage: 42 MG, ONCE, WITH HER OTHER MEDICATIONS
     Route: 048
     Dates: start: 20210312, end: 20210312
  2. MAGNESIUM SUPPLEMENT [Concomitant]
     Active Substance: MAGNESIUM
  3. UNSPECIFIED BIRTH CONTROL [Concomitant]
     Active Substance: UNSPECIFIED INGREDIENT
  4. TOPAMAX [Concomitant]
     Active Substance: TOPIRAMATE
     Indication: SEIZURE
     Dosage: UNK MG

REACTIONS (5)
  - Pain [Recovered/Resolved]
  - Somnolence [Recovered/Resolved]
  - Middle insomnia [Recovered/Resolved]
  - Burning sensation [Recovered/Resolved]
  - Poor quality sleep [Recovered/Resolved]

NARRATIVE: CASE EVENT DATE: 20210313
